FAERS Safety Report 9499022 (Version 2)
Quarter: 2013Q3

REPORT INFORMATION
  Report Type: Spontaneous
  Country: US (occurrence: US)
  Receive Date: 20130904
  Receipt Date: 20130912
  Transmission Date: 20140515
  Serious: Yes (Hospitalization)
  Sender: FDA-Public Use
  Company Number: US-BAXTER-2013BAX034268

PATIENT
  Age: 68 Year
  Sex: Male

DRUGS (13)
  1. DIANEAL LOW CALCIUM [Suspect]
     Indication: PERITONEAL DIALYSIS
     Route: 033
     Dates: start: 200503, end: 20130523
  2. DIANEAL LOW CALCIUM [Suspect]
     Route: 033
     Dates: start: 200503, end: 20130523
  3. DIANEAL LOW CALCIUM [Suspect]
     Route: 033
     Dates: start: 20130830
  4. DIANEAL LOW CALCIUM [Suspect]
     Indication: PERITONEAL DIALYSIS
     Route: 033
     Dates: start: 200503, end: 20130523
  5. DIANEAL LOW CALCIUM [Suspect]
     Route: 033
     Dates: start: 200503, end: 20130523
  6. DIANEAL LOW CALCIUM [Suspect]
     Route: 033
     Dates: start: 20130830
  7. DIANEAL LOW CALCIUM [Suspect]
     Indication: PERITONEAL DIALYSIS
     Route: 033
     Dates: start: 200503, end: 20130523
  8. DIANEAL LOW CALCIUM [Suspect]
     Route: 033
     Dates: start: 200503, end: 20130523
  9. DIANEAL LOW CALCIUM [Suspect]
     Route: 033
     Dates: start: 20130830
  10. DIANEAL LOW CALCIUM (ULTRABAG) [Suspect]
     Indication: PERITONEAL DIALYSIS
     Route: 033
     Dates: start: 200503, end: 20130523
  11. DIANEAL LOW CALCIUM (ULTRABAG) [Suspect]
     Route: 033
     Dates: start: 20130830
  12. DIANEAL LOW CALCIUM (ULTRABAG) [Suspect]
     Indication: PERITONEAL DIALYSIS
     Route: 033
     Dates: start: 200503, end: 20130523
  13. DIANEAL LOW CALCIUM (ULTRABAG) [Suspect]
     Route: 033
     Dates: start: 20130830

REACTIONS (2)
  - Post procedural cellulitis [Recovered/Resolved]
  - Escherichia infection [Recovered/Resolved]
